FAERS Safety Report 15700463 (Version 1)
Quarter: 2018Q4

REPORT INFORMATION
  Report Type: Spontaneous
  Country: RU (occurrence: RU)
  Receive Date: 20181207
  Receipt Date: 20181207
  Transmission Date: 20190205
  Serious: Yes (Other)
  Sender: FDA-Public Use
  Company Number: PHHY2018RU177717

PATIENT
  Age: 27 Year
  Sex: Female

DRUGS (5)
  1. VIGAMOX [Suspect]
     Active Substance: MOXIFLOXACIN HYDROCHLORIDE
     Indication: CONJUNCTIVITIS
     Dosage: 1 GTT, BID
     Route: 047
     Dates: start: 20171129, end: 20171201
  2. CONVULEX (VALPROIC ACID) [Concomitant]
     Active Substance: VALPROIC ACID
     Indication: EPILEPSY
     Dosage: UNK
     Route: 048
     Dates: start: 20170524
  3. FINLEPSIN [Concomitant]
     Active Substance: CARBAMAZEPINE
     Indication: EPILEPSY
     Dosage: UNK
     Route: 048
     Dates: start: 20080929
  4. DEPAKINE [Concomitant]
     Active Substance: VALPROATE SODIUM
     Indication: EPILEPSY
     Dosage: UNK
     Route: 048
     Dates: start: 20080929
  5. DEPAKINE CHRONOSPHERE [Concomitant]
     Active Substance: VALPROIC ACID
     Indication: EPILEPSY
     Dosage: UNK
     Route: 048
     Dates: start: 20160707

REACTIONS (1)
  - Conjunctival oedema [Recovering/Resolving]

NARRATIVE: CASE EVENT DATE: 20171129
